FAERS Safety Report 8579034-1 (Version None)
Quarter: 2012Q3

REPORT INFORMATION
  Report Type: 
  Country: None (occurrence: None)
  Receive Date: 20120808
  Receipt Date: 20120801
  Transmission Date: 20120928
  Serious: Yes (Other)
  Sender: FDA-Public Use
  Company Number: CA-ROCHE-1001767

PATIENT
  Sex: Male

DRUGS (4)
  1. FLUTICASONE PROPIONATE [Concomitant]
  2. NORVASC [Concomitant]
  3. OMALIZUMAB [Suspect]
     Indication: ASTHMA
     Route: 058
     Dates: start: 20090921
  4. SINGULAIR [Concomitant]

REACTIONS (2)
  - PARKINSON'S DISEASE [None]
  - OEDEMA PERIPHERAL [None]
